FAERS Safety Report 10504090 (Version 1)
Quarter: 2014Q4

REPORT INFORMATION
  Report Type: Spontaneous
  Country: US (occurrence: None)
  Receive Date: 20141007
  Receipt Date: 20141007
  Transmission Date: 20150528
  Serious: Yes (Hospitalization)
  Sender: FDA-Public Use
  Company Number: None

PATIENT
  Age: 41 Year
  Sex: Male
  Weight: 94.7 kg

DRUGS (7)
  1. CYCLOPHOSPHAMIDE. [Suspect]
     Active Substance: CYCLOPHOSPHAMIDE
     Dates: end: 20140915
  2. ONCASPAR [Suspect]
     Active Substance: PEGASPARGASE
     Dosage: 3750 UNIT
     Dates: end: 20140829
  3. DEXAMETHASONE. [Suspect]
     Active Substance: DEXAMETHASONE
     Dates: end: 20140901
  4. MERCAPTOPURINE. [Suspect]
     Active Substance: MERCAPTOPURINE
     Dates: end: 20140928
  5. METHOTREXATE [Suspect]
     Active Substance: METHOTREXATE
     Dates: end: 20140922
  6. DAUNORUBICIN [Suspect]
     Active Substance: DAUNORUBICIN
     Dates: end: 20140902
  7. CYTARABINE. [Suspect]
     Active Substance: CYTARABINE
     Dates: end: 20140925

REACTIONS (3)
  - Platelet count decreased [None]
  - Anaemia [None]
  - Rectal haemorrhage [None]

NARRATIVE: CASE EVENT DATE: 20140929
